FAERS Safety Report 5108180-X (Version None)
Quarter: 2006Q3

REPORT INFORMATION
  Report Type: 
  Country: None (occurrence: None)
  Receive Date: 20060915
  Receipt Date: 20060905
  Transmission Date: 20061208
  Serious: Yes (Hospitalization, Other)
  Sender: FDA-Public Use
  Company Number: 2006BI011183

PATIENT
  Age: 42 Year
  Sex: Female

DRUGS (14)
  1. AVONEX [Suspect]
     Indication: MULTIPLE SCLEROSIS
     Dosage: 30 UG;QW;IM
     Route: 030
     Dates: start: 20020320
  2. VERAPAMIL [Concomitant]
  3. ZANTAC [Concomitant]
  4. ZOLOFT [Concomitant]
  5. RESTORIL [Concomitant]
  6. FOSAMAX [Concomitant]
  7. CLARINEX [Concomitant]
  8. NYSTATIN [Concomitant]
  9. CLOTRIMAZOLE [Concomitant]
  10. CEPHALEXIN [Concomitant]
  11. BACTRIM [Concomitant]
  12. SYMMETREL [Concomitant]
  13. BACLOFEN [Concomitant]
  14. ACETIC ACID [Concomitant]

REACTIONS (11)
  - APHASIA [None]
  - COMMUNICATION DISORDER [None]
  - CONFUSIONAL STATE [None]
  - CONVULSION [None]
  - DEMENTIA [None]
  - HYPOKINESIA [None]
  - MENTAL STATUS CHANGES [None]
  - MULTIPLE SCLEROSIS [None]
  - UNRESPONSIVE TO STIMULI [None]
  - URINARY TRACT INFECTION [None]
  - VERBIGERATION [None]
